FAERS Safety Report 24162910 (Version 1)
Quarter: 2024Q3

REPORT INFORMATION
  Report Type: Spontaneous
  Country: US (occurrence: None)
  Receive Date: 20240801
  Receipt Date: 20240801
  Transmission Date: 20241017
  Serious: Yes (Other)
  Sender: Public
  Company Number: None

PATIENT
  Age: 41 Year
  Sex: Male
  Weight: 110.25 kg

DRUGS (2)
  1. SULFAMETHOXAZOLE AND TRIMETHOPRIM [Suspect]
     Active Substance: SULFAMETHOXAZOLE\TRIMETHOPRIM
     Indication: Infected cyst
     Dosage: 1 TABLET  TWICE A DAY ORAL
     Route: 048
     Dates: start: 20240728, end: 20240801
  2. BACTRIM [Concomitant]
     Active Substance: SULFAMETHOXAZOLE\TRIMETHOPRIM

REACTIONS (5)
  - Tinnitus [None]
  - Penis disorder [None]
  - Skin exfoliation [None]
  - Purulent discharge [None]
  - Pruritus [None]

NARRATIVE: CASE EVENT DATE: 20240801
